FAERS Safety Report 17481216 (Version 6)
Quarter: 2020Q2

REPORT INFORMATION
  Report Type: Spontaneous
  Country: US (occurrence: US)
  Receive Date: 20200302
  Receipt Date: 20200613
  Transmission Date: 20200713
  Serious: No
  Sender: FDA-Public Use
  Company Number: US-BIOGEN-2020BI00844266

PATIENT
  Sex: Male

DRUGS (3)
  1. TECFIDERA [Suspect]
     Active Substance: DIMETHYL FUMARATE
     Route: 048
     Dates: start: 2020
  2. TECFIDERA [Suspect]
     Active Substance: DIMETHYL FUMARATE
     Route: 065
  3. TECFIDERA [Suspect]
     Active Substance: DIMETHYL FUMARATE
     Indication: MULTIPLE SCLEROSIS
     Route: 048
     Dates: start: 2017

REACTIONS (14)
  - Hypoaesthesia [Unknown]
  - Sexual dysfunction [Unknown]
  - Bladder disorder [Unknown]
  - Drug ineffective [Unknown]
  - Pain [Unknown]
  - Anxiety [Unknown]
  - Hot flush [Unknown]
  - Rectal tenesmus [Unknown]
  - Gastrointestinal disorder [Unknown]
  - Multiple sclerosis [Unknown]
  - Cardiac disorder [Not Recovered/Not Resolved]
  - Gait disturbance [Unknown]
  - Toothache [Unknown]
  - Hypersensitivity [Unknown]

NARRATIVE: CASE EVENT DATE: 2017
